FAERS Safety Report 5971175-8 (Version None)
Quarter: 2008Q4

REPORT INFORMATION
  Report Type: 
  Country: None (occurrence: None)
  Receive Date: 20081128
  Receipt Date: 20081121
  Transmission Date: 20090506
  Serious: Yes (Other)
  Sender: FDA-Public Use
  Company Number: GB-ABBOTT-08P-167-0471090-00

PATIENT
  Sex: Female
  Weight: 52.4 kg

DRUGS (9)
  1. HUMIRA [Suspect]
     Indication: CROHN'S DISEASE
     Dosage: LOADING DOSE
     Route: 058
     Dates: start: 20080507, end: 20080507
  2. HUMIRA [Suspect]
     Route: 058
     Dates: start: 20080507
  3. METHOTREXATE [Concomitant]
     Indication: CROHN'S DISEASE
  4. PREDNISOLONE SODIUM PHOSPHATE [Concomitant]
     Indication: CROHN'S DISEASE
  5. CODEINE SUL TAB [Concomitant]
     Indication: DIARRHOEA
     Route: 048
     Dates: start: 20060101
  6. PARACETAMOL [Concomitant]
     Indication: PAIN
     Dosage: 19 MG, 4 TIMES DAILY, AS NEEDED
     Route: 048
     Dates: start: 20060101
  7. OMEPRAZOLE SODIUM [Concomitant]
     Indication: PROPHYLAXIS AGAINST GASTROINTESTINAL ULCER
     Route: 048
     Dates: start: 20060101
  8. LOPERAMIDE HYDROCHLORIDE [Concomitant]
     Indication: DIARRHOEA
     Route: 048
     Dates: start: 20060101
  9. FLUOXETINE [Concomitant]
     Indication: DEPRESSED MOOD
     Route: 048

REACTIONS (3)
  - DYSPNOEA [None]
  - VOMITING [None]
  - WHEEZING [None]
